FAERS Safety Report 7783595-X (Version None)
Quarter: 2011Q3

REPORT INFORMATION
  Report Type: 
  Country: None (occurrence: None)
  Receive Date: 20110928
  Receipt Date: 20110527
  Transmission Date: 20111222
  Serious: No
  Sender: FDA-Public Use
  Company Number: US-MYLANLABS-2011S1011097

PATIENT
  Age: 52 Year
  Sex: Female

DRUGS (9)
  1. FUROSEMIDE [Suspect]
     Indication: BLOOD PRESSURE INCREASED
     Route: 048
     Dates: start: 20100101
  2. FUROSEMIDE [Suspect]
     Indication: OEDEMA
     Route: 048
     Dates: start: 20100101
  3. LEVOTHYROXINE SODIUM [Concomitant]
     Indication: HYPOTHYROIDISM
  4. VITAMIN TAB [Concomitant]
  5. SIMVASTATIN [Concomitant]
     Indication: BLOOD CHOLESTEROL INCREASED
  6. CARDIZEM [Concomitant]
     Indication: BLOOD PRESSURE INCREASED
  7. CLARITIN /00917501/ [Concomitant]
     Indication: MULTIPLE ALLERGIES
  8. ATENOLOL [Concomitant]
     Indication: BLOOD PRESSURE INCREASED
  9. POTASSIUM [Concomitant]

REACTIONS (2)
  - CONFUSIONAL STATE [None]
  - FEELING ABNORMAL [None]
